FAERS Safety Report 17496338 (Version 1)
Quarter: 2020Q1

REPORT INFORMATION
  Report Type: Spontaneous
  Country: US (occurrence: US)
  Receive Date: 20200304
  Receipt Date: 20200304
  Transmission Date: 20200409
  Serious: Yes (Disabling)
  Sender: FDA-Public Use
  Company Number: None

PATIENT
  Age: 33 Year
  Sex: Female
  Weight: 81 kg

DRUGS (4)
  1. PREGNANCY VITAMIN SUPPLEMENT GUMMIES [Concomitant]
  2. BUDESONIDE 0.5 MG/2ML [Concomitant]
  3. MONTELUKAST SODIUM. [Suspect]
     Active Substance: MONTELUKAST SODIUM
     Indication: MYCOTIC ALLERGY
     Dosage: ?          QUANTITY:1 TABLET(S);?
     Route: 048
     Dates: start: 20190823, end: 20200204
  4. FOLIC ACID. [Concomitant]
     Active Substance: FOLIC ACID

REACTIONS (4)
  - Aspartate aminotransferase increased [None]
  - Haemangioma of liver [None]
  - Blood alkaline phosphatase increased [None]
  - Alanine aminotransferase increased [None]

NARRATIVE: CASE EVENT DATE: 20190917
